FAERS Safety Report 10159449 (Version 2)
Quarter: 2014Q2

REPORT INFORMATION
  Report Type: Spontaneous
  Country: US (occurrence: US)
  Receive Date: 20140508
  Receipt Date: 20140508
  Transmission Date: 20141212
  Serious: Yes (Hospitalization)
  Sender: FDA-Public Use
  Company Number: US-BEH-2012031131

PATIENT
  Age: 53 Year
  Sex: Female
  Weight: 81 kg

DRUGS (36)
  1. HIZENTRA [Suspect]
     Route: 058
     Dates: start: 20111230
  2. HIZENTRA [Suspect]
     Dosage: 1 SITE OVER 1 HOUR 15 MINUTES
     Route: 058
     Dates: start: 20120109, end: 20120109
  3. HIZENTRA [Suspect]
     Dosage: 1 GM (5 ML) ON 1 SITS OVER 1 HOURS 15 MINUTES
     Route: 058
     Dates: start: 20120206, end: 20120206
  4. HIZENTRA [Suspect]
     Dates: start: 20120106
  5. HIZENTRA [Suspect]
     Indication: HYPOGLOBULINAEMIA
     Dosage: 1 GM (5ML) ON 1 SITE OVER 1 HOUR AND 15 MINUTES
     Route: 058
     Dates: start: 20120127, end: 20120127
  6. HIZENTRA [Suspect]
     Dosage: 1 GM (5ML) ON 1 SITE
     Route: 058
     Dates: start: 20120306, end: 20120306
  7. HIZENTRA [Suspect]
     Dosage: (20 ML) 1 SITE
     Route: 058
     Dates: start: 20120417
  8. HIZENTRA [Suspect]
     Dosage: 1 GM
     Route: 058
  9. SINGULAIR [Suspect]
  10. CYMBALTA [Concomitant]
     Route: 048
  11. TORSEMIDE [Concomitant]
     Route: 048
  12. IPRAT-ALBUT [Concomitant]
     Dosage: 0.5-3(2.5) MG/3 ML
  13. VALIUM [Concomitant]
     Route: 048
  14. LOVAZA [Concomitant]
  15. LAMICTAL XR [Concomitant]
  16. TEMAZEPAM [Concomitant]
  17. NEXIUM [Concomitant]
     Dosage: DR
     Route: 048
  18. ALBUTEROL [Concomitant]
     Dosage: 0.083% SOLUTION
     Route: 055
  19. BYSTOLIC [Concomitant]
     Dosage: 2.5 MG
     Route: 048
  20. ULTRAM [Concomitant]
     Route: 048
  21. VITAMIN B 12 INJECTION [Concomitant]
     Dosage: 1000 MCG/ML
  22. VITAMIN D [Concomitant]
  23. ISOSORBIDE [Concomitant]
  24. DOXYCYCLINE [Concomitant]
  25. LEVAQUIN [Concomitant]
     Route: 048
  26. ACETAMINOPHEN [Concomitant]
  27. ABILIFY [Concomitant]
  28. IBUPROFEN [Concomitant]
     Route: 048
  29. OSPHENA [Concomitant]
  30. DIPHENHYDRAMINE [Concomitant]
  31. EPIPEN [Concomitant]
  32. LMX [Concomitant]
  33. RANEXA [Concomitant]
     Dosage: ER
     Route: 048
  34. VISTARIL [Concomitant]
     Route: 048
  35. ROZEREM [Concomitant]
     Route: 048
  36. VITAMIN D3 [Concomitant]
     Dosage: 50,000 UNITS
     Route: 048

REACTIONS (12)
  - Myocardial infarction [Unknown]
  - Infusion site erythema [Recovering/Resolving]
  - Infusion site swelling [Recovering/Resolving]
  - Infusion site pain [Recovering/Resolving]
  - Dizziness [Unknown]
  - Hot flush [Unknown]
  - Chills [Unknown]
  - Chills [Unknown]
  - Chills [Recovered/Resolved]
  - Hot flush [Recovered/Resolved]
  - Injection site urticaria [Unknown]
  - Injection site pain [Unknown]
